FAERS Safety Report 5576626-9 (Version None)
Quarter: 2007Q4

REPORT INFORMATION
  Report Type: 
  Country: None (occurrence: None)
  Receive Date: 20071228
  Receipt Date: 20071220
  Transmission Date: 20080405
  Serious: Yes (Other)
  Sender: FDA-Public Use
  Company Number: DE-ABBOTT-07P-062-0431255-00

PATIENT
  Age: 18 Year
  Sex: Male

DRUGS (2)
  1. ERGENYL CHRONO TABLETS [Suspect]
     Indication: GRAND MAL CONVULSION
     Route: 048
     Dates: start: 20071130, end: 20071207
  2. ERGENYL CHRONO TABLETS [Suspect]
     Dosage: FROM 300MG QD TO INCREASING DOSES WEEKLY
     Route: 048
     Dates: start: 20071123, end: 20071129

REACTIONS (4)
  - AKATHISIA [None]
  - ANXIETY [None]
  - DYSPNOEA [None]
  - PANIC ATTACK [None]
